FAERS Safety Report 9335392 (Version 2)
Quarter: 2013Q2

REPORT INFORMATION
  Report Type: Spontaneous
  Country: US (occurrence: US)
  Receive Date: 20130606
  Receipt Date: 20130624
  Transmission Date: 20140414
  Serious: Yes (Death, Hospitalization)
  Sender: FDA-Public Use
  Company Number: US-TEVA-409665USA

PATIENT
  Sex: Female

DRUGS (6)
  1. NUVIGIL [Suspect]
     Route: 048
  2. HUMALOG [Concomitant]
     Indication: DIABETES MELLITUS
  3. JANUMET, [Concomitant]
     Indication: DIABETES MELLITUS
  4. LEVAMIR [Concomitant]
     Indication: DIABETES MELLITUS
  5. METOPROLOL [Concomitant]
  6. TAPAZOLE [Concomitant]

REACTIONS (1)
  - Lung cancer metastatic [Fatal]
